FAERS Safety Report 7637793-6 (Version None)
Quarter: 2011Q3

REPORT INFORMATION
  Report Type: 
  Country: None (occurrence: None)
  Receive Date: 20110727
  Receipt Date: 20110720
  Transmission Date: 20111222
  Serious: Yes (Death)
  Sender: FDA-Public Use
  Company Number: JP-CELGENEUS-087-21660-11070921

PATIENT
  Age: 63 Year
  Sex: Male
  Weight: 35 kg

DRUGS (5)
  1. ASVERIN [Concomitant]
     Indication: PNEUMONIA
     Dosage: 60 MILLIGRAM
     Route: 048
     Dates: start: 20110518, end: 20110703
  2. ABRAXANE [Suspect]
     Indication: BREAST CANCER METASTATIC
     Dosage: 300 MILLIGRAM
     Route: 051
     Dates: start: 20110427, end: 20110518
  3. LOXOPROFEN [Concomitant]
     Indication: PAIN
     Dosage: 180 MILLIGRAM
     Route: 048
     Dates: start: 20110531, end: 20110703
  4. CYTOTEC [Concomitant]
     Indication: PAIN
     Dosage: 600 MICROGRAM
     Route: 048
     Dates: start: 20110531, end: 20110703
  5. ABRAXANE [Suspect]
     Dosage: 300 MILLIGRAM
     Route: 051
     Dates: start: 20110622, end: 20110622

REACTIONS (1)
  - DEATH [None]
